FAERS Safety Report 17717218 (Version 1)
Quarter: 2020Q2

REPORT INFORMATION
  Report Type: Spontaneous
  Country: US (occurrence: US)
  Receive Date: 20200428
  Receipt Date: 20200428
  Transmission Date: 20200714
  Serious: Yes (Other)
  Sender: FDA-Public Use
  Company Number: US-TEVA-2020-US-1228029

PATIENT
  Age: 34 Year
  Sex: Male

DRUGS (3)
  1. TACROLIMUS. [Concomitant]
     Active Substance: TACROLIMUS
     Dosage: DOSE REDUCED AFTER INITIATION OF TREATMENT WITH COTRIMOXAZOLE
     Route: 065
  2. TACROLIMUS. [Concomitant]
     Active Substance: TACROLIMUS
     Indication: PROPHYLAXIS AGAINST GRAFT VERSUS HOST DISEASE
     Dosage: UNSPECIFIED STARTING DOSE
     Route: 065
  3. TRIMETHOPRIM-SULFAMETHOXAZOLE [Suspect]
     Active Substance: SULFAMETHOXAZOLE\TRIMETHOPRIM
     Indication: TOXOPLASMOSIS
     Route: 042

REACTIONS (3)
  - Immune reconstitution inflammatory syndrome [Unknown]
  - Toxoplasmosis [Unknown]
  - Paradoxical drug reaction [Unknown]
